FAERS Safety Report 15556531 (Version 3)
Quarter: 2018Q4

REPORT INFORMATION
  Report Type: Spontaneous
  Country: BE (occurrence: BE)
  Receive Date: 20181026
  Receipt Date: 20181116
  Transmission Date: 20190205
  Serious: Yes (Hospitalization, Other)
  Sender: FDA-Public Use
  Company Number: BE-PFIZER INC-2018432087

PATIENT
  Sex: Male

DRUGS (2)
  1. METHOTREXATE SODIUM. [Suspect]
     Active Substance: METHOTREXATE SODIUM
     Dosage: UNK
  2. SAR156597 [Interacting]
     Active Substance: ROMILKIMAB
     Indication: SYSTEMIC SCLERODERMA
     Dosage: 200 MG, WEEKLY
     Route: 058
     Dates: start: 20171116, end: 20180201

REACTIONS (4)
  - Blood creatine phosphokinase increased [Unknown]
  - Drug interaction [Unknown]
  - General physical health deterioration [Unknown]
  - Lung disorder [Unknown]

NARRATIVE: CASE EVENT DATE: 20180907
